FAERS Safety Report 5269538-1 (Version None)
Quarter: 2007Q1

REPORT INFORMATION
  Report Type: 
  Country: None (occurrence: None)
  Receive Date: 20061213
  Receipt Date: 20031008
  Transmission Date: 20070707
  Serious: Yes (Other)
  Sender: FDA-Public Use
  Company Number: 2003UW13051

PATIENT
  Age: 61 Year
  Sex: Female
  Weight: 40.8237 kg

DRUGS (7)
  1. IRESSA [Suspect]
     Indication: NON-SMALL CELL LUNG CANCER
     Dosage: 250 MG PO
     Route: 048
     Dates: start: 20030715
  2. SYNTHROID [Concomitant]
  3. DIOVAN [Concomitant]
  4. CENTRUM [Concomitant]
  5. ALBUTEROL [Concomitant]
  6. GUAIFENESIN [Concomitant]
  7. ATIVAN [Concomitant]

REACTIONS (3)
  - EYE SWELLING [None]
  - RASH [None]
  - SWELLING FACE [None]
